FAERS Safety Report 10196926 (Version 2)
Quarter: 2014Q2

REPORT INFORMATION
  Report Type: Spontaneous
  Country: IT (occurrence: IT)
  Receive Date: 20140527
  Receipt Date: 20140609
  Transmission Date: 20141212
  Serious: Yes (Hospitalization)
  Sender: FDA-Public Use
  Company Number: IT-SA-2014SA062667

PATIENT
  Age: 86 Year
  Sex: Female

DRUGS (7)
  1. SODIUM FERRIC GLUCONATE COMPLEX [Suspect]
     Indication: ANAEMIA
     Route: 042
     Dates: start: 20140503, end: 20140503
  2. LANOXIN [Concomitant]
  3. DILATREND [Concomitant]
  4. CARDIOASPIRIN [Concomitant]
  5. LASIX [Concomitant]
  6. FOLINA [Concomitant]
  7. ZYLORIC [Concomitant]
     Dosage: DIVISIBLE TABLET

REACTIONS (3)
  - Ecchymosis [Recovered/Resolved]
  - Erythema [Recovered/Resolved]
  - Gravitational oedema [Recovered/Resolved]
